FAERS Safety Report 15383886 (Version 1)
Quarter: 2018Q3

REPORT INFORMATION
  Report Type: Spontaneous
  Country: CA (occurrence: CA)
  Receive Date: 20180913
  Receipt Date: 20180913
  Transmission Date: 20181010
  Serious: Yes (Hospitalization, Other)
  Sender: FDA-Public Use
  Company Number: CA-ASTRAZENECA-2018SF16084

PATIENT
  Age: 59 Year
  Sex: Female

DRUGS (5)
  1. LYNPARZA [Suspect]
     Active Substance: OLAPARIB
     Indication: OVARIAN CANCER
     Dosage: TWICE A WEEK
     Route: 048
  2. CARBO TAXOL [Concomitant]
     Dates: start: 201705, end: 201707
  3. CARBO DOXIL [Concomitant]
     Dates: start: 201712, end: 201803
  4. CARBO TAXOL [Concomitant]
     Dates: start: 201701, end: 201704
  5. TAXOL [Concomitant]
     Active Substance: PACLITAXEL
     Dates: start: 201803, end: 201806

REACTIONS (2)
  - Ascites [Unknown]
  - Ovarian cancer recurrent [Unknown]

NARRATIVE: CASE EVENT DATE: 201712
